FAERS Safety Report 5050953-6 (Version None)
Quarter: 2006Q3

REPORT INFORMATION
  Report Type: 
  Country: None (occurrence: None)
  Receive Date: 20060710
  Receipt Date: 20060626
  Transmission Date: 20061208
  Serious: Yes (Hospitalization)
  Sender: FDA-Public Use
  Company Number: 226702

PATIENT
  Age: 51 Year
  Sex: Female

DRUGS (18)
  1. AVASTIN [Suspect]
     Indication: COLORECTAL CANCER METASTATIC
     Dosage: 5 MG/KG, INTRAVENOUS
     Route: 042
     Dates: start: 20060124
  2. ERBITUX [Suspect]
     Indication: COLORECTAL CANCER METASTATIC
     Dosage: 250 MG/M2, INTRAVENOUS
     Route: 042
     Dates: start: 20060124
  3. FLUOROURACIL [Suspect]
     Indication: COLORECTAL CANCER METASTATIC
     Dosage: 400 MG/M2, INTRAVENOUS
     Route: 042
     Dates: start: 20060124
  4. OXALIPLATIN (OXALIPLATIN) [Suspect]
     Indication: COLORECTAL CANCER METASTATIC
     Dosage: 85 MG/M2, INTRAVENOUS
     Route: 042
     Dates: start: 20060124
  5. BENADRYL [Concomitant]
  6. AMBIEN [Concomitant]
  7. COMPAZINE [Concomitant]
  8. BENTYL [Concomitant]
  9. MULTIVITAMIN (MULTIVITAMINS NOS) [Concomitant]
  10. PROTONIX [Concomitant]
  11. IMODIUM [Concomitant]
  12. LOMOTIL [Concomitant]
  13. FLAGYL [Concomitant]
  14. ZOLOFT [Concomitant]
  15. PHENERGAN (PROMETHAZINE HYDROCHLORIDE) [Concomitant]
  16. PROMETHEZINE HCL [Concomitant]
  17. OCTREOTIDE ACETATE (OCTREOTIDE ACETATE) [Concomitant]
  18. LEVOFLOXACIN [Concomitant]

REACTIONS (9)
  - BLOOD UREA DECREASED [None]
  - DEHYDRATION [None]
  - DIARRHOEA [None]
  - HYPOKALAEMIA [None]
  - NAUSEA [None]
  - NEUTROPENIA [None]
  - PYREXIA [None]
  - VOMITING [None]
  - WHITE BLOOD CELL COUNT DECREASED [None]
